FAERS Safety Report 5300300-7 (Version None)
Quarter: 2007Q2

REPORT INFORMATION
  Report Type: 
  Country: None (occurrence: None)
  Receive Date: 20070413
  Receipt Date: 20070413
  Transmission Date: 20071010
  Serious: No
  Sender: FDA-Public Use
  Company Number: None

PATIENT
  Age: 0 Year

DRUGS (1)
  1. ATENOLOL [Suspect]
     Indication: HYPERTENSION
     Dosage: 1 TABLET DAILY
     Dates: start: 20070130, end: 20070217

REACTIONS (5)
  - BONE PAIN [None]
  - HYPERSENSITIVITY [None]
  - MALAISE [None]
  - MYALGIA [None]
  - REACTION TO DRUG EXCIPIENTS [None]
